FAERS Safety Report 5682170-0 (Version None)
Quarter: 2008Q1

REPORT INFORMATION
  Report Type: 
  Country: None (occurrence: None)
  Receive Date: 20080325
  Receipt Date: 20080311
  Transmission Date: 20080703
  Serious: Yes (Hospitalization, Other)
  Sender: FDA-Public Use
  Company Number: 2007S1000303

PATIENT
  Age: 35 Year
  Sex: Female
  Weight: 163.1 kg

DRUGS (1)
  1. ACITRETIN [Suspect]
     Indication: PSORIASIS
     Dosage: PO
     Route: 048

REACTIONS (9)
  - CAROTID ARTERY STENOSIS [None]
  - CEREBROVASCULAR ACCIDENT [None]
  - DYSAESTHESIA [None]
  - IN-STENT CORONARY ARTERY RESTENOSIS [None]
  - SUBARACHNOID HAEMORRHAGE [None]
  - TRANSIENT ISCHAEMIC ATTACK [None]
  - VASCULAR RUPTURE [None]
  - VASCULAR STENOSIS [None]
  - VASOSPASM [None]
